FAERS Safety Report 4320510-5 (Version None)
Quarter: 2004Q1

REPORT INFORMATION
  Report Type: 
  Country: None (occurrence: None)
  Receive Date: 20040322
  Receipt Date: 20040317
  Transmission Date: 20041129
  Serious: Yes (Other)
  Sender: FDA-Public Use
  Company Number: 200413273GDDC

PATIENT
  Age: 36 Year
  Sex: Female

DRUGS (2)
  1. LANTUS [Suspect]
     Indication: DIABETES MELLITUS INSULIN-DEPENDENT
     Dosage: DOSE UNIT: UNITS
     Route: 058
     Dates: start: 20040227, end: 20040310
  2. RENITEC [Concomitant]
     Indication: HYPERTENSION
     Route: 048
     Dates: start: 20030617

REACTIONS (5)
  - BLOOD GLUCOSE INCREASED [None]
  - BURNING SENSATION [None]
  - INJECTION SITE BURNING [None]
  - INJECTION SITE REACTION [None]
  - OLIGURIA [None]
